FAERS Safety Report 9178927 (Version 1)
Quarter: 2012Q4

REPORT INFORMATION
  Report Type: 
  Country: US (occurrence: US)
  Receive Date: 20121029
  Receipt Date: 20121029
  Transmission Date: 20130627
  Serious: No
  Sender: FDA-Public Use
  Company Number: US-AMGEN-USASP2012052870

PATIENT
  Age: 36 Year
  Sex: Male

DRUGS (1)
  1. ENBREL [Suspect]
     Indication: PSORIASIS
     Dosage: 50 mg, 2 times/wk
     Dates: start: 20120501

REACTIONS (3)
  - Pharyngitis streptococcal [Recovered/Resolved]
  - Guttate psoriasis [Not Recovered/Not Resolved]
  - Injection site swelling [Recovered/Resolved]
